FAERS Safety Report 16726129 (Version 2)
Quarter: 2019Q4

REPORT INFORMATION
  Report Type: Spontaneous
  Country: US (occurrence: US)
  Receive Date: 20190821
  Receipt Date: 20191108
  Transmission Date: 20200122
  Serious: Yes (Other)
  Sender: FDA-Public Use
  Company Number: US-ENDO PHARMACEUTICALS INC-2019-107363

PATIENT
  Age: 51 Year
  Sex: Male
  Weight: 107.48 kg

DRUGS (2)
  1. XIAFLEX [Suspect]
     Active Substance: COLLAGENASE CLOSTRIDIUM HISTOLYTICUM
     Dosage: 0.9 MG, SINGLE, CYCLE ONE INJECTION ONE
     Route: 026
     Dates: start: 20190801
  2. XIAFLEX [Suspect]
     Active Substance: COLLAGENASE CLOSTRIDIUM HISTOLYTICUM
     Indication: PEYRONIE^S DISEASE
     Dosage: 0.9 MG, SINGLE, CYCLE ONE INJECTION TWO
     Route: 026
     Dates: start: 20190802, end: 20190812

REACTIONS (2)
  - Fracture of penis [Recovering/Resolving]
  - Corpora cavernosa surgery [Recovered/Resolved]

NARRATIVE: CASE EVENT DATE: 20190813
